FAERS Safety Report 24551147 (Version 2)
Quarter: 2024Q4

REPORT INFORMATION
  Report Type: Spontaneous
  Country: FR (occurrence: FR)
  Receive Date: 20241025
  Receipt Date: 20241115
  Transmission Date: 20250115
  Serious: Yes (Hospitalization)
  Sender: SANDOZ
  Company Number: None

PATIENT
  Age: 43 Year
  Sex: Female
  Weight: 86 kg

DRUGS (35)
  1. ANAPEINE [Suspect]
     Active Substance: ROPIVACAINE HYDROCHLORIDE
     Indication: Anaesthesia
     Dosage: UNK
     Route: 042
     Dates: start: 20240920, end: 20240920
  2. ANAPEINE [Suspect]
     Active Substance: ROPIVACAINE HYDROCHLORIDE
     Dosage: UNK
     Route: 042
     Dates: start: 20240920, end: 20240920
  3. ANAPEINE [Suspect]
     Active Substance: ROPIVACAINE HYDROCHLORIDE
     Dosage: UNK
     Route: 042
     Dates: start: 20240920, end: 20240920
  4. ANAPEINE [Suspect]
     Active Substance: ROPIVACAINE HYDROCHLORIDE
     Dosage: UNK
     Route: 042
     Dates: start: 20240920, end: 20240920
  5. ACETAMINOPHEN [Suspect]
     Active Substance: ACETAMINOPHEN
     Indication: Angina pectoris
     Dosage: 1 GRAM, 1 DOSE 6 HOURS, SI BESOIN
     Route: 042
     Dates: start: 20240904, end: 20240923
  6. ACETAMINOPHEN [Suspect]
     Active Substance: ACETAMINOPHEN
     Dosage: 1 GRAM, 1 DOSE 6 HOURS, SI BESOIN
     Route: 042
     Dates: start: 20240904, end: 20240923
  7. ACETAMINOPHEN [Suspect]
     Active Substance: ACETAMINOPHEN
     Dosage: 1 GRAM, 1 DOSE 6 HOURS, SI BESOIN
     Route: 042
     Dates: start: 20240904, end: 20240923
  8. ACETAMINOPHEN [Suspect]
     Active Substance: ACETAMINOPHEN
     Dosage: 1 GRAM, 1 DOSE 6 HOURS, SI BESOIN
     Route: 042
     Dates: start: 20240904, end: 20240923
  9. ACETAMINOPHEN [Suspect]
     Active Substance: ACETAMINOPHEN
     Dosage: 1 GRAM, 1 DOSE 6 HOURS, SI BESOIN
     Route: 048
     Dates: start: 20240924, end: 20240928
  10. ACETAMINOPHEN [Suspect]
     Active Substance: ACETAMINOPHEN
     Dosage: 1 GRAM, 1 DOSE 6 HOURS, SI BESOIN
     Route: 048
     Dates: start: 20240924, end: 20240928
  11. ACETAMINOPHEN [Suspect]
     Active Substance: ACETAMINOPHEN
     Dosage: 1 GRAM, 1 DOSE 6 HOURS, SI BESOIN
     Route: 048
     Dates: start: 20240924, end: 20240928
  12. CIPROFLOXACIN [Suspect]
     Active Substance: CIPROFLOXACIN
     Dosage: 800 MG, QD
     Route: 042
     Dates: start: 20240912, end: 20240918
  13. CIPROFLOXACIN [Suspect]
     Active Substance: CIPROFLOXACIN
     Indication: Agranulocytosis
     Dosage: 800.000MG QD
     Route: 042
     Dates: start: 20240912, end: 20240918
  14. ENOXAPARIN SODIUM [Suspect]
     Active Substance: ENOXAPARIN SODIUM
     Dosage: 0.4 ML, QD
     Route: 058
     Dates: start: 20240906, end: 20241003
  15. ENOXAPARIN SODIUM [Suspect]
     Active Substance: ENOXAPARIN SODIUM
     Indication: Thrombosis prophylaxis
     Dosage: 0.400ML QD
     Route: 058
     Dates: start: 20240906, end: 20241003
  16. MORPHINE [Suspect]
     Active Substance: MORPHINE
     Dosage: 10 MG, QD (PARENTERAL)
     Route: 065
     Dates: start: 20240906, end: 20240923
  17. MORPHINE [Suspect]
     Active Substance: MORPHINE
     Indication: Angina pectoris
     Dosage: 10.000MG QD (PARENTERAL)
     Route: 065
     Dates: start: 20240906, end: 20240923
  18. NEFOPAM HYDROCHLORIDE [Suspect]
     Active Substance: NEFOPAM HYDROCHLORIDE
     Dosage: 120 MG, QD
     Route: 042
     Dates: start: 20240907, end: 20240918
  19. NEFOPAM HYDROCHLORIDE [Suspect]
     Active Substance: NEFOPAM HYDROCHLORIDE
     Indication: Angina pectoris
     Dosage: 120.000MG QD
     Route: 042
     Dates: start: 20240907, end: 20240918
  20. FILGRASTIM [Suspect]
     Active Substance: FILGRASTIM
     Dosage: 1 DOSAGE FORM, QD
     Route: 042
     Dates: start: 20240911, end: 20240913
  21. FILGRASTIM [Suspect]
     Active Substance: FILGRASTIM
     Indication: Agranulocytosis
     Dosage: 1.000DF QD
     Route: 042
     Dates: start: 20240911, end: 20240913
  22. ACETAMINOPHEN [Suspect]
     Active Substance: ACETAMINOPHEN
     Indication: Angina pectoris
     Dosage: SI BESOIN
     Route: 042
     Dates: start: 20240904, end: 20240923
  23. ACETAMINOPHEN [Suspect]
     Active Substance: ACETAMINOPHEN
     Dosage: SI BESOIN
     Route: 048
     Dates: start: 20240924, end: 20240928
  24. PIPERACILLIN SODIUM [Suspect]
     Active Substance: PIPERACILLIN SODIUM
     Dosage: 16 GRAM, QD
     Route: 042
     Dates: start: 20240904, end: 20240919
  25. PIPERACILLIN SODIUM [Suspect]
     Active Substance: PIPERACILLIN SODIUM
     Indication: Agranulocytosis
     Dosage: 16.000G QD
     Route: 042
     Dates: start: 20240904, end: 20240919
  26. TAZOBACTAM [Suspect]
     Active Substance: TAZOBACTAM
     Dosage: 16 GRAM, QD
     Route: 042
     Dates: start: 20240904, end: 20240919
  27. TAZOBACTAM [Suspect]
     Active Substance: TAZOBACTAM
     Indication: Agranulocytosis
     Dosage: 16.000G QD
     Route: 042
     Dates: start: 20240904, end: 20240919
  28. VANCOMYCIN [Suspect]
     Active Substance: VANCOMYCIN
     Dosage: 3 G, QD
     Route: 042
     Dates: start: 20240912, end: 20240918
  29. VANCOMYCIN [Suspect]
     Active Substance: VANCOMYCIN
     Indication: Agranulocytosis
     Dosage: 3.000G QD
     Route: 042
     Dates: start: 20240912, end: 20240918
  30. CYANOCOBALAMIN [Suspect]
     Active Substance: CYANOCOBALAMIN
     Dosage: 1 DOSAGE FORM, QD
     Route: 030
     Dates: start: 20240919, end: 20240922
  31. CYANOCOBALAMIN [Suspect]
     Active Substance: CYANOCOBALAMIN
     Indication: Vitamin B12 deficiency
     Dosage: 1.000DF QD
     Route: 030
     Dates: start: 20240919, end: 20240922
  32. VITAMIN K [Suspect]
     Active Substance: PHYTONADIONE
     Dosage: 10 MG
     Route: 048
     Dates: start: 20240919, end: 20240919
  33. VITAMIN K [Suspect]
     Active Substance: PHYTONADIONE
     Indication: Vitamin K deficiency
     Dosage: 10.000MG
     Route: 048
     Dates: start: 20240919, end: 20240919
  34. IOBITRIDOL [Suspect]
     Active Substance: IOBITRIDOL
     Dosage: 3 DOSAGE FORM
     Route: 042
     Dates: start: 20240905, end: 20240913
  35. IOBITRIDOL [Suspect]
     Active Substance: IOBITRIDOL
     Indication: Imaging procedure
     Dosage: 3.000DF
     Route: 042
     Dates: start: 20240905, end: 20240913

REACTIONS (1)
  - Symmetrical drug-related intertriginous and flexural exanthema [Recovering/Resolving]

NARRATIVE: CASE EVENT DATE: 20240923
